FAERS Safety Report 6027689-8 (Version None)
Quarter: 2009Q1

REPORT INFORMATION
  Report Type: 
  Country: None (occurrence: None)
  Receive Date: 20090105
  Receipt Date: 20081205
  Transmission Date: 20090719
  Serious: No
  Sender: FDA-Public Use
  Company Number: US-TYCO HEALTHCARE/MALLINCKRODT-T200802091

PATIENT

DRUGS (2)
  1. TECHNETIUM TC 99M SESTAMIBI [Suspect]
     Indication: SCAN PARATHYROID
     Dosage: UNK
     Dates: start: 20081204, end: 20081204
  2. ULTRA-TECHNEKOW [Concomitant]
     Indication: SCAN PARATHYROID
     Dosage: UNK
     Dates: start: 20081204, end: 20081204

REACTIONS (1)
  - DRUG INEFFECTIVE [None]
